FAERS Safety Report 8555363-2 (Version None)
Quarter: 2012Q3

REPORT INFORMATION
  Report Type: 
  Country: None (occurrence: None)
  Receive Date: 20120731
  Receipt Date: 20120103
  Transmission Date: 20120928
  Serious: No
  Sender: FDA-Public Use
  Company Number: US-ASTRAZENECA-2011SE51173

PATIENT
  Age: 52 Year
  Sex: Male
  Weight: 90.7 kg

DRUGS (4)
  1. SEROQUEL XR [Suspect]
     Indication: DEPRESSION
     Route: 048
     Dates: end: 20110101
  2. SEROQUEL XR [Suspect]
     Indication: OBSESSIVE-COMPULSIVE DISORDER
     Route: 048
     Dates: end: 20110101
  3. PRIAMT/HCTB [Concomitant]
  4. AMLODIPINE [Concomitant]

REACTIONS (5)
  - THERAPEUTIC RESPONSE UNEXPECTED [None]
  - OBSESSIVE-COMPULSIVE DISORDER [None]
  - ALCOHOLISM [None]
  - DRUG DOSE OMISSION [None]
  - MERYCISM [None]
